FAERS Safety Report 12826333 (Version 1)
Quarter: 2016Q4

REPORT INFORMATION
  Report Type: Spontaneous
  Country: US (occurrence: US)
  Receive Date: 20161006
  Receipt Date: 20161006
  Transmission Date: 20170207
  Serious: No
  Sender: FDA-Public Use
  Company Number: US-JAZZ-2016-US-012793

PATIENT
  Sex: Female

DRUGS (10)
  1. XYREM [Suspect]
     Active Substance: SODIUM OXYBATE
     Dosage: 6 G FIRST DOSE AND 3.75 G SECOND DOSE FOR 5 DAYS A WEEK AND 6 G TWICE NIGHTLY ON SATURDAY AND SUNDAY
     Dates: start: 201402, end: 201602
  2. VYVANSE [Suspect]
     Active Substance: LISDEXAMFETAMINE DIMESYLATE
     Indication: PRODUCT USED FOR UNKNOWN INDICATION
     Dosage: UNK
     Dates: end: 20160706
  3. MAGNESIUM [Concomitant]
     Active Substance: MAGNESIUM
  4. VITAMIN B12 [Concomitant]
     Active Substance: CYANOCOBALAMIN
  5. XYREM [Suspect]
     Active Substance: SODIUM OXYBATE
     Indication: NARCOLEPSY
     Dosage: 1.5 G, BID
     Route: 048
     Dates: start: 200403, end: 200404
  6. XYREM [Suspect]
     Active Substance: SODIUM OXYBATE
     Dosage: 6 G, BID
     Route: 048
     Dates: start: 201312, end: 201402
  7. XYREM [Suspect]
     Active Substance: SODIUM OXYBATE
     Dosage: DOSE ADJSUTMENTS
     Route: 048
     Dates: start: 200404, end: 201002
  8. XYREM [Suspect]
     Active Substance: SODIUM OXYBATE
     Dosage: 6 G, BID
     Route: 048
     Dates: start: 201002
  9. XYREM [Suspect]
     Active Substance: SODIUM OXYBATE
     Dosage: 4.5 G, BID
     Route: 048
     Dates: start: 201602
  10. NUVIGIL [Suspect]
     Active Substance: ARMODAFINIL
     Indication: PRODUCT USED FOR UNKNOWN INDICATION
     Dosage: 150 MG
     Dates: start: 20160516, end: 20160630

REACTIONS (5)
  - Hypotension [Not Recovered/Not Resolved]
  - Nervousness [Unknown]
  - Sleep disorder [Not Recovered/Not Resolved]
  - Hypersensitivity [Unknown]
  - Drug ineffective [Unknown]
